FAERS Safety Report 5096142-0 (Version None)
Quarter: 2006Q3

REPORT INFORMATION
  Report Type: 
  Country: None (occurrence: None)
  Receive Date: 20060831
  Receipt Date: 20060823
  Transmission Date: 20061208
  Serious: Yes (Other)
  Sender: FDA-Public Use
  Company Number: 2006-DE-04429GD

PATIENT
  Age: 85 Year
  Sex: Female

DRUGS (4)
  1. PREDNISONE TAB [Suspect]
     Indication: PEMPHIGOID
     Dosage: 0.75 MG/KG, PO
     Route: 048
  2. CLOBETASOL PROPIONATE [Concomitant]
  3. TETRACYCLINE [Concomitant]
  4. HYDROXYZINE [Concomitant]

REACTIONS (2)
  - IMMUNOSUPPRESSION [None]
  - PNEUMONIA [None]
